FAERS Safety Report 9483708 (Version 2)
Quarter: 2013Q3

REPORT INFORMATION
  Report Type: Spontaneous
  Country: US (occurrence: US)
  Receive Date: 20130828
  Receipt Date: 20130828
  Transmission Date: 20140515
  Serious: Yes (Hospitalization)
  Sender: FDA-Public Use
  Company Number: US-AMGEN-KDL314097

PATIENT
  Age: 69 Year
  Sex: Female

DRUGS (2)
  1. ENBREL [Suspect]
     Indication: RHEUMATOID ARTHRITIS
     Dosage: 50 MG, QWK
     Route: 058
     Dates: start: 20080705
  2. METHOTREXATE [Concomitant]
     Dosage: UNK UNK, UNK
     Dates: start: 20080101

REACTIONS (14)
  - Loss of consciousness [Unknown]
  - Head injury [Unknown]
  - Haemorrhage [Unknown]
  - Rheumatoid lung [Recovered/Resolved]
  - Vaginal discharge [Not Recovered/Not Resolved]
  - Faeces discoloured [Not Recovered/Not Resolved]
  - Blood glucose decreased [Recovered/Resolved]
  - Chest discomfort [Recovered/Resolved]
  - Speech disorder [Recovered/Resolved]
  - Memory impairment [Recovered/Resolved]
  - Gastrointestinal haemorrhage [Recovered/Resolved]
  - Abdominal pain lower [Not Recovered/Not Resolved]
  - Anaemia [Not Recovered/Not Resolved]
  - Hypertension [Recovered/Resolved]
